FAERS Safety Report 8158448-8 (Version None)
Quarter: 2012Q1

REPORT INFORMATION
  Report Type: 
  Country: None (occurrence: None)
  Receive Date: 20120223
  Receipt Date: 20120220
  Transmission Date: 20120608
  Serious: No
  Sender: FDA-Public Use
  Company Number: US-PFIZER INC-2012044875

PATIENT
  Sex: Female
  Weight: 98 kg

DRUGS (10)
  1. SPIRONOLACTONE W/ HYDROCHLOROTHIAZIDE [Concomitant]
     Dosage: 25/25 MG, 1X/DAY
     Route: 048
  2. PRAVASTATIN [Concomitant]
     Dosage: UNK, 1X/DAY
  3. VERAPAMIL [Concomitant]
     Dosage: 180 MG, 2X/DAY
  4. PREMARIN [Concomitant]
     Dosage: 0.625 MG, 1X/DAY
  5. ACETYLSALICYLIC ACID [Concomitant]
     Dosage: 81 MG, 1X/DAY
  6. ALPRAZOLAM [Concomitant]
     Dosage: 0.25 MG, 1X/DAY
  7. ALBUTEROL [Concomitant]
     Dosage: UNK
  8. TRAZODONE [Concomitant]
     Dosage: 50 MG, 1X/DAY
  9. CELEBREX [Suspect]
     Indication: OSTEOARTHRITIS
     Dosage: 200 MG, 2X/DAY
     Route: 048
     Dates: end: 20110101
  10. LEVOTHYROXINE [Concomitant]
     Dosage: UNK

REACTIONS (2)
  - BACK INJURY [None]
  - FALL [None]
